FAERS Safety Report 9234342 (Version 1)
Quarter: 2013Q2

REPORT INFORMATION
  Report Type: Report from Study
  Country: US (occurrence: US)
  Receive Date: 20130416
  Receipt Date: 20130416
  Transmission Date: 20140414
  Serious: Yes (Death, Other)
  Sender: FDA-Public Use
  Company Number: US-ROCHE-1160265

PATIENT
  Age: 64 Year
  Sex: Male
  Weight: 73.55 kg

DRUGS (5)
  1. ZELBORAF [Suspect]
     Indication: METASTATIC MALIGNANT MELANOMA
     Route: 048
     Dates: start: 20121115
  2. OXYCONTIN [Concomitant]
     Indication: PAIN
     Route: 048
  3. DEXAMETHASONE [Concomitant]
     Indication: METASTASES TO CENTRAL NERVOUS SYSTEM
     Route: 048
     Dates: start: 201303
  4. DEXAMETHASONE [Concomitant]
     Indication: SWELLING
  5. ATIVAN [Concomitant]
     Indication: ANXIETY
     Route: 065
     Dates: start: 20130306

REACTIONS (24)
  - Disease progression [Fatal]
  - Brain neoplasm malignant [Not Recovered/Not Resolved]
  - Local swelling [Recovered/Resolved]
  - Skin papilloma [Not Recovered/Not Resolved]
  - Squamous cell carcinoma of skin [Not Recovered/Not Resolved]
  - Arthralgia [Not Recovered/Not Resolved]
  - Fatigue [Not Recovered/Not Resolved]
  - Dysgeusia [Not Recovered/Not Resolved]
  - Swelling [Recovered/Resolved]
  - Metastases to central nervous system [Not Recovered/Not Resolved]
  - Local swelling [Recovered/Resolved]
  - Incoherent [Recovering/Resolving]
  - Confusional state [Recovering/Resolving]
  - Skin lesion [Recovered/Resolved]
  - Local swelling [Recovered/Resolved]
  - Mood swings [Not Recovered/Not Resolved]
  - Disturbance in attention [Recovering/Resolving]
  - Restlessness [Not Recovered/Not Resolved]
  - Insomnia [Not Recovered/Not Resolved]
  - Appetite disorder [Not Recovered/Not Resolved]
  - Hyperaesthesia [Not Recovered/Not Resolved]
  - Penile swelling [Recovered/Resolved]
  - Testicular swelling [Recovered/Resolved]
  - Joint swelling [Recovered/Resolved]
